FAERS Safety Report 8820124 (Version 2)
Quarter: 2012Q4

REPORT INFORMATION
  Report Type: Report from Study
  Country: CA (occurrence: CA)
  Receive Date: 20121001
  Receipt Date: 20121016
  Transmission Date: 20130627
  Serious: Yes (Death)
  Sender: FDA-Public Use
  Company Number: CA-ROCHE-1089583

PATIENT
  Sex: Male

DRUGS (16)
  1. VEMURAFENIB [Suspect]
     Indication: METASTATIC MALIGNANT MELANOMA
     Route: 048
     Dates: start: 201206, end: 2012
  2. SYNTHROID [Concomitant]
  3. SENNA [Concomitant]
  4. LACTULOSE [Concomitant]
  5. METOCLOPRAMIDE [Concomitant]
  6. PROCHLORPERAZINE [Concomitant]
     Indication: NAUSEA
  7. FRAGMIN [Concomitant]
     Route: 058
  8. HYDROMORPHONE [Concomitant]
  9. BISACODYL [Concomitant]
  10. ONDANSETRON [Concomitant]
  11. PREGABALIN [Concomitant]
  12. RANITIDINE [Concomitant]
  13. ENOXAPARINE SODIQUE [Concomitant]
  14. TRAMACET [Concomitant]
  15. OXAZEPAM [Concomitant]
  16. DEXAMETHASONE [Concomitant]

REACTIONS (7)
  - Death [Fatal]
  - Nausea [Not Recovered/Not Resolved]
  - Vomiting [Not Recovered/Not Resolved]
  - Dysgeusia [Not Recovered/Not Resolved]
  - Decreased appetite [Not Recovered/Not Resolved]
  - Rash [Recovered/Resolved]
  - Weight decreased [Not Recovered/Not Resolved]
